FAERS Safety Report 7331036-9 (Version None)
Quarter: 2011Q1

REPORT INFORMATION
  Report Type: 
  Country: None (occurrence: None)
  Receive Date: 20110304
  Receipt Date: 20110223
  Transmission Date: 20110831
  Serious: Yes (Hospitalization, Other)
  Sender: FDA-Public Use
  Company Number: US-CEPHALON-2011000125

PATIENT
  Sex: Female
  Weight: 54 kg

DRUGS (5)
  1. METOPROLOL [Concomitant]
     Dates: start: 20090701
  2. PROVIGIL [Suspect]
     Route: 048
     Dates: start: 20101230
  3. PROVIGIL [Suspect]
     Route: 048
     Dates: start: 20100301, end: 20101227
  4. LEVOTHYROXINE SODIUM [Concomitant]
     Dates: start: 19760101
  5. PROVIGIL [Suspect]
     Indication: NARCOLEPSY
     Route: 048
     Dates: start: 20060101, end: 20090601

REACTIONS (8)
  - PANCREATITIS [None]
  - PNEUMONIA [None]
  - DRUG PRESCRIBING ERROR [None]
  - PLEURAL EFFUSION [None]
  - MALAISE [None]
  - VOMITING [None]
  - DYSPNOEA [None]
  - NAUSEA [None]
